FAERS Safety Report 10900347 (Version 1)
Quarter: 2015Q1

REPORT INFORMATION
  Report Type: Spontaneous
  Country: US (occurrence: US)
  Receive Date: 20150310
  Receipt Date: 20150310
  Transmission Date: 20150721
  Serious: No
  Sender: FDA-Public Use
  Company Number: US-BIOGENIDEC-2015BI022196

PATIENT
  Sex: Male

DRUGS (1)
  1. TECFIDERA [Suspect]
     Active Substance: DIMETHYL FUMARATE
     Indication: MULTIPLE SCLEROSIS

REACTIONS (5)
  - Muscle spasticity [Not Recovered/Not Resolved]
  - Limb discomfort [Unknown]
  - Blood cholesterol increased [Not Recovered/Not Resolved]
  - Hypoaesthesia [Unknown]
  - Middle insomnia [Unknown]
